FAERS Safety Report 8607750-1 (Version None)
Quarter: 2012Q3

REPORT INFORMATION
  Report Type: 
  Country: None (occurrence: None)
  Receive Date: 20120821
  Receipt Date: 20120814
  Transmission Date: 20120928
  Serious: Yes (Hospitalization, Other)
  Sender: FDA-Public Use
  Company Number: PHHY2012CA041547

PATIENT
  Sex: Female

DRUGS (1)
  1. SANDOSTATIN LAR [Suspect]
     Indication: NEUROENDOCRINE TUMOUR
     Dosage: 30 MG, EVERY 4 WEEKS
     Route: 030
     Dates: start: 20120319

REACTIONS (5)
  - HEART RATE INCREASED [None]
  - PAIN [None]
  - DYSPNOEA [None]
  - BLOOD PRESSURE INADEQUATELY CONTROLLED [None]
  - DIABETIC NEUROPATHY [None]
